FAERS Safety Report 11619690 (Version 1)
Quarter: 2015Q4

REPORT INFORMATION
  Report Type: Spontaneous
  Country: US (occurrence: US)
  Receive Date: 20151012
  Receipt Date: 20151012
  Transmission Date: 20160304
  Serious: No
  Sender: FDA-Public Use
  Company Number: US-BAYER-2015-441524

PATIENT
  Age: 84 Year
  Sex: Female
  Weight: 55.78 kg

DRUGS (2)
  1. COLACE [Concomitant]
     Active Substance: DOCUSATE SODIUM
  2. MIRALAX [Suspect]
     Active Substance: POLYETHYLENE GLYCOL 3350
     Dosage: 1 DF, ONCE
     Route: 048

REACTIONS (1)
  - Flatulence [None]

NARRATIVE: CASE EVENT DATE: 20151008
